FAERS Safety Report 5991497-4 (Version None)
Quarter: 2008Q4

REPORT INFORMATION
  Report Type: 
  Country: None (occurrence: None)
  Receive Date: 20081202
  Receipt Date: 20071211
  Transmission Date: 20090506
  Serious: Yes (Other)
  Sender: FDA-Public Use
  Company Number: WAES 0606USA00340

PATIENT
  Age: 58 Year
  Sex: Female
  Weight: 72.5755 kg

DRUGS (9)
  1. FOSAMAX [Suspect]
     Indication: OSTEOPENIA
     Dosage: 35 MG/WKY/PO ; 70 MG/WKY/PO ; 10 MG/DAILY/PO ; 5 MG/DAILY/PO
     Route: 048
     Dates: start: 19940101, end: 20000101
  2. FOSAMAX [Suspect]
     Indication: OSTEOPENIA
     Dosage: 35 MG/WKY/PO ; 70 MG/WKY/PO ; 10 MG/DAILY/PO ; 5 MG/DAILY/PO
     Route: 048
     Dates: start: 20010701, end: 20060301
  3. .. [Concomitant]
  4. .. [Concomitant]
  5. .. [Concomitant]
  6. FOSAMAX PLUS D [Concomitant]
  7. LIPITOR [Concomitant]
  8. ZOCOR [Concomitant]
  9. CALCIUM (UNSPECIFIED) (+) VITAMI [Concomitant]

REACTIONS (16)
  - BLOOD PRESSURE INCREASED [None]
  - CATARACT OPERATION [None]
  - CEREBRAL ISCHAEMIA [None]
  - DIZZINESS [None]
  - DRY SKIN [None]
  - DYSPNOEA [None]
  - MENISCUS LESION [None]
  - NAUSEA [None]
  - OSTEOARTHRITIS [None]
  - OSTEOMYELITIS [None]
  - OSTEONECROSIS [None]
  - PAIN IN EXTREMITY [None]
  - RETCHING [None]
  - SINUSITIS [None]
  - TRIGEMINAL NEURALGIA [None]
  - VENOUS ANGIOMA OF BRAIN [None]
